FAERS Safety Report 19487194 (Version 1)
Quarter: 2021Q3

REPORT INFORMATION
  Report Type: Spontaneous
  Country: CN (occurrence: CN)
  Receive Date: 20210702
  Receipt Date: 20210702
  Transmission Date: 20211014
  Serious: Yes (Hospitalization, Other)
  Sender: FDA-Public Use
  Company Number: CN-ASTRAZENECA-2021A573171

PATIENT
  Age: 72 Year
  Sex: Female

DRUGS (4)
  1. IMFINZI [Suspect]
     Active Substance: DURVALUMAB
     Indication: LUNG NEOPLASM MALIGNANT
     Route: 041
     Dates: start: 20210112, end: 20210512
  2. ETOPOSIDE. [Suspect]
     Active Substance: ETOPOSIDE
     Indication: LUNG DISORDER
     Route: 041
     Dates: start: 20210609, end: 20210613
  3. CISPLATIN. [Suspect]
     Active Substance: CISPLATIN
     Indication: LUNG DISORDER
     Route: 065
     Dates: start: 20210609, end: 20210609
  4. SODIUM CHLORIDE. [Concomitant]
     Active Substance: SODIUM CHLORIDE
     Indication: LUNG DISORDER
     Dosage: 250.0 ML, ONCE A DAY
     Route: 041
     Dates: start: 20210609, end: 20210613

REACTIONS (1)
  - Myelosuppression [Recovered/Resolved]

NARRATIVE: CASE EVENT DATE: 20210609
